FAERS Safety Report 8544262-8 (Version None)
Quarter: 2012Q2

REPORT INFORMATION
  Report Type: 
  Country: None (occurrence: None)
  Receive Date: 20120416
  Receipt Date: 20090318
  Transmission Date: 20120825
  Serious: Yes (Other)
  Sender: FDA-Public Use
  Company Number: PHEH2009US02044

PATIENT
  Sex: Male

DRUGS (17)
  1. DIOVAN [Suspect]
     Indication: HYPERTENSION
     Dosage: 160 MG, QD, ORAL ; 40 MG, QD, ORAL
     Route: 048
  2. VYTORIN [Concomitant]
  3. SALMON OIL [Concomitant]
  4. LEXAPRO [Concomitant]
  5. MIRALAX [Concomitant]
  6. ZETIA [Concomitant]
  7. CALCIUM CARBONATE [Concomitant]
  8. ASPIRIN [Concomitant]
  9. ASCORBIC ACID [Concomitant]
  10. CELEBREX [Concomitant]
  11. VITAMIN B12 [Concomitant]
  12. COENZYME Q10 [Concomitant]
  13. NIASPAN [Concomitant]
  14. PROZAC [Concomitant]
  15. VITAMIN D [Concomitant]
  16. NIACIN [Concomitant]
  17. VITAMIN E [Concomitant]

REACTIONS (3)
  - BLOOD PRESSURE DECREASED [None]
  - DIZZINESS [None]
  - PRESYNCOPE [None]
